FAERS Safety Report 8301615-0 (Version None)
Quarter: 2012Q2

REPORT INFORMATION
  Report Type: 
  Country: None (occurrence: None)
  Receive Date: 20120420
  Receipt Date: 20120417
  Transmission Date: 20120825
  Serious: Yes (Death)
  Sender: FDA-Public Use
  Company Number: US-ELI_LILLY_AND_COMPANY-US201204005898

PATIENT
  Age: 53 Year
  Sex: Male

DRUGS (1)
  1. GEMZAR [Suspect]
     Indication: LUNG NEOPLASM MALIGNANT
     Dosage: 1900 MG, EVERY WEEK FOR 2 THEN OFF 1 WEEK
     Dates: start: 20120320, end: 20120327

REACTIONS (1)
  - DEATH [None]
